FAERS Safety Report 8411288-4 (Version None)
Quarter: 2012Q2

REPORT INFORMATION
  Report Type: 
  Country: None (occurrence: None)
  Receive Date: 20120605
  Receipt Date: 20120531
  Transmission Date: 20120825
  Serious: Yes (Hospitalization)
  Sender: FDA-Public Use
  Company Number: FR-PFIZER INC-2012130715

PATIENT
  Age: 76 Year
  Sex: Male

DRUGS (11)
  1. FLUCONAZOLE [Concomitant]
     Indication: ANTIBIOTIC THERAPY
     Route: 042
  2. CIPROFLOXACIN HYDROCHLORIDE [Suspect]
     Dosage: UNK
     Route: 042
     Dates: start: 20120409, end: 20120410
  3. VANCOMYCIN [Concomitant]
     Indication: ANTIBIOTIC THERAPY
     Route: 042
  4. MIDAZOLAM HCL [Concomitant]
  5. TAZOBACTAM [Suspect]
     Dosage: UNK
     Route: 042
     Dates: start: 20120409, end: 20120410
  6. CIPROFLOXACIN HYDROCHLORIDE [Suspect]
     Indication: ANTIBIOTIC THERAPY
     Dosage: UNK
     Route: 042
     Dates: start: 20120325, end: 20120328
  7. ZYVOX [Concomitant]
  8. ERYTHROMYCIN [Concomitant]
     Indication: ANTIBIOTIC THERAPY
     Route: 042
  9. SUFENTANIL [Concomitant]
  10. AMIKACIN [Concomitant]
     Indication: ANTIBIOTIC THERAPY
     Route: 042
  11. TAZOBACTAM [Suspect]
     Indication: ANTIBIOTIC THERAPY
     Dosage: UNK
     Route: 042
     Dates: start: 20120325, end: 20120328

REACTIONS (1)
  - DRUG RASH WITH EOSINOPHILIA AND SYSTEMIC SYMPTOMS [None]
